FAERS Safety Report 12531379 (Version 5)
Quarter: 2016Q4

REPORT INFORMATION
  Report Type: Spontaneous
  Country: US (occurrence: US)
  Receive Date: 20160706
  Receipt Date: 20161019
  Transmission Date: 20170207
  Serious: Yes (Hospitalization, Other)
  Sender: FDA-Public Use
  Company Number: US-BIOMARINAP-US-2016-110336

PATIENT
  Age: 3 Year
  Sex: Female

DRUGS (1)
  1. VIMIZIM [Suspect]
     Active Substance: ELOSULFASE ALFA
     Indication: MUCOPOLYSACCHARIDOSIS
     Dosage: 25 MG, QW
     Route: 042
     Dates: start: 20150129

REACTIONS (3)
  - Neoplasm [Unknown]
  - Spinal disorder [Unknown]
  - Spinal cord compression [Unknown]

NARRATIVE: CASE EVENT DATE: 20160627
